FAERS Safety Report 4269887-X (Version None)
Quarter: 2004Q1

REPORT INFORMATION
  Report Type: 
  Country: None (occurrence: None)
  Receive Date: 20040112
  Receipt Date: 20040112
  Transmission Date: 20041129
  Serious: Yes (Hospitalization)
  Sender: FDA-Public Use
  Company Number: None

PATIENT
  Age: 57 Year
  Sex: Male

DRUGS (7)
  1. WARFARIN SODIUM [Suspect]
     Indication: THROMBOSIS
     Dosage: 5 MG Q.O.D.
     Dates: start: 20030701
  2. TYLENOL W/ CODEINE NO. 3 [Concomitant]
  3. FUROSEMIDE [Concomitant]
  4. KCL TAB [Concomitant]
  5. PLAVIX [Concomitant]
  6. DSS [Concomitant]
  7. ZOCOR [Concomitant]

REACTIONS (1)
  - GASTROINTESTINAL HAEMORRHAGE [None]
